FAERS Safety Report 13325911 (Version 1)
Quarter: 2017Q1

REPORT INFORMATION
  Report Type: Spontaneous
  Country: None (occurrence: US)
  Receive Date: 20170310
  Receipt Date: 20170310
  Transmission Date: 20170428
  Serious: Yes (Hospitalization)
  Sender: FDA-Public Use
  Company Number: US-BIO-PHARM, INC -1064137

PATIENT
  Age: 24 Month
  Sex: Male

DRUGS (1)
  1. CHILDRENS MAPAP [Suspect]
     Active Substance: ACETAMINOPHEN
     Route: 048
     Dates: start: 20170220, end: 20170220

REACTIONS (1)
  - Dermatitis allergic [Recovered/Resolved]

NARRATIVE: CASE EVENT DATE: 20170220
